FAERS Safety Report 20428052 (Version 1)
Quarter: 2022Q1

REPORT INFORMATION
  Report Type: Report from Study
  Country: AU (occurrence: AU)
  Receive Date: 20220204
  Receipt Date: 20220204
  Transmission Date: 20220424
  Serious: Yes (Other)
  Sender: FDA-Public Use
  Company Number: AU-ABBVIE-22K-008-4226067-00

PATIENT
  Age: 75 Year

DRUGS (2)
  1. CARBIDOPA\LEVODOPA [Suspect]
     Active Substance: CARBIDOPA\LEVODOPA
     Indication: Parkinson^s disease
     Dosage: ED POST MORNING DOSE ROUTINELY AND 3 TO 4 IN AFTERNOON EVERY 2 HOURS TOTAL OF 12ML PERDAY
     Route: 050
     Dates: start: 20210716
  2. CARBIDOPA\LEVODOPA [Suspect]
     Active Substance: CARBIDOPA\LEVODOPA

REACTIONS (3)
  - Loss of consciousness [Unknown]
  - Anxiety [Recovering/Resolving]
  - Freezing phenomenon [Unknown]

NARRATIVE: CASE EVENT DATE: 20220107
